FAERS Safety Report 23406053 (Version 1)
Quarter: 2024Q1

REPORT INFORMATION
  Report Type: Spontaneous
  Country: ES (occurrence: ES)
  Receive Date: 20240116
  Receipt Date: 20240116
  Transmission Date: 20240409
  Serious: Yes (Other)
  Sender: FDA-Public Use
  Company Number: ES-AVADEL CNS PHARMACEUTICALS, LLC-2024AVA00012

PATIENT
  Age: 48 Year
  Sex: Male

DRUGS (4)
  1. SODIUM OXYBATE [Suspect]
     Active Substance: SODIUM OXYBATE
     Indication: Narcolepsy
     Dosage: INITIALLY PRESCRIBED; UNKNOWN
  2. SODIUM OXYBATE [Suspect]
     Active Substance: SODIUM OXYBATE
     Indication: Cataplexy
     Dosage: 30 G DAILY OR MORE
     Route: 048
  3. SODIUM OXYBATE [Suspect]
     Active Substance: SODIUM OXYBATE
     Dosage: 3.5 G, 2X/DAY (2200 AND 0100 HOURS)
  4. SODIUM OXYBATE [Suspect]
     Active Substance: SODIUM OXYBATE
     Dosage: PAST 2 DAYS; AROUND 40 ML (20 G)

REACTIONS (2)
  - Mania [Recovered/Resolved]
  - Drug abuse [Recovered/Resolved]
